FAERS Safety Report 21233791 (Version 1)
Quarter: 2022Q3

REPORT INFORMATION
  Report Type: Spontaneous
  Country: US (occurrence: None)
  Receive Date: 20220819
  Receipt Date: 20220819
  Transmission Date: 20221027
  Serious: No
  Sender: FDA-Public Use
  Company Number: None

PATIENT
  Sex: Female

DRUGS (1)
  1. PROLIA [Suspect]
     Active Substance: DENOSUMAB
     Indication: Senile osteoporosis
     Dosage: 60MG EVERY 6 MONTHS  SQ?
     Route: 058
     Dates: start: 20181205

REACTIONS (3)
  - Ankle fracture [None]
  - Wrist fracture [None]
  - Therapy cessation [None]
